FAERS Safety Report 14928188 (Version 1)
Quarter: 2018Q2

REPORT INFORMATION
  Report Type: Spontaneous
  Country: BR (occurrence: BR)
  Receive Date: 20180523
  Receipt Date: 20180523
  Transmission Date: 20180711
  Serious: Yes (Death, Hospitalization)
  Sender: FDA-Public Use
  Company Number: BR-PFIZER INC-2018040012

PATIENT
  Age: 21 Year
  Sex: Male

DRUGS (1)
  1. SUTENT [Suspect]
     Active Substance: SUNITINIB MALATE
     Indication: DESMOPLASTIC SMALL ROUND CELL TUMOUR
     Dosage: 50 MG, DAILY (1 TABLET PER DAY WITH BREAK)
     Route: 048
     Dates: start: 201801, end: 201802

REACTIONS (9)
  - Multiple organ dysfunction syndrome [Fatal]
  - Yellow skin [Unknown]
  - Product use in unapproved indication [Unknown]
  - Gamma-glutamyltransferase increased [Unknown]
  - Neoplasm progression [Fatal]
  - Asthenia [Not Recovered/Not Resolved]
  - Feeling abnormal [Not Recovered/Not Resolved]
  - Blood bilirubin abnormal [Recovered/Resolved]
  - Eating disorder [Not Recovered/Not Resolved]

NARRATIVE: CASE EVENT DATE: 201802
